FAERS Safety Report 10037652 (Version 1)
Quarter: 2014Q1

REPORT INFORMATION
  Report Type: Spontaneous
  Country: US (occurrence: US)
  Receive Date: 20140326
  Receipt Date: 20140326
  Transmission Date: 20141002
  Serious: No
  Sender: FDA-Public Use
  Company Number: US-PFIZER INC-2014084300

PATIENT
  Age: 58 Year
  Sex: Female
  Weight: 79.4 kg

DRUGS (2)
  1. LYRICA [Suspect]
     Indication: DIABETIC NEUROPATHY
     Dosage: 50 MG, 2X/DAY
     Dates: start: 2014
  2. LEVEMIR [Concomitant]
     Indication: DIABETES MELLITUS
     Dosage: 42IU IN THE MORNING AND 48IU AT NIGHT

REACTIONS (1)
  - Drug effect incomplete [Unknown]
